FAERS Safety Report 8832423 (Version 1)
Quarter: 2012Q4

REPORT INFORMATION
  Report Type: Spontaneous
  Country: US (occurrence: None)
  Receive Date: 20121005
  Receipt Date: 20121005
  Transmission Date: 20130627
  Serious: Yes (Other)
  Sender: FDA-Public Use
  Company Number: 2012SA070077

PATIENT
  Age: 32 Year
  Sex: Female

DRUGS (2)
  1. ICY HOT POWER GEL [Suspect]
     Indication: MUSCLE SPASMS
     Route: 061
     Dates: start: 2012, end: 2012
  2. ICY HOT POWER GEL [Suspect]
     Indication: ARTHRITIS
     Route: 061
     Dates: start: 2012, end: 2012

REACTIONS (2)
  - Chemical injury [None]
  - Blister [None]
